FAERS Safety Report 6116311-8 (Version None)
Quarter: 2009Q1

REPORT INFORMATION
  Report Type: 
  Country: None (occurrence: None)
  Receive Date: 20090314
  Receipt Date: 20081208
  Transmission Date: 20090719
  Serious: No
  Sender: FDA-Public Use
  Company Number: US-ABBOTT-08P-163-0491774-00

PATIENT
  Sex: Female
  Weight: 56.296 kg

DRUGS (23)
  1. HUMIRA [Suspect]
     Indication: RHEUMATOID ARTHRITIS
     Route: 058
     Dates: start: 20010101
  2. LOVOX [Concomitant]
     Indication: HYPOTHYROIDISM
  3. CONJUGATED ESTROGENS [Concomitant]
     Indication: MENOPAUSAL SYMPTOMS
     Route: 048
  4. ROPINIROLE [Concomitant]
     Indication: RESTLESS LEGS SYNDROME
     Route: 048
  5. TEMAZEPAM [Concomitant]
     Indication: INSOMNIA
     Route: 048
  6. POTASSIUM CHLORIDE [Concomitant]
     Indication: BLOOD POTASSIUM DECREASED
     Route: 048
  7. ACETYLSALICYLIC ACID [Concomitant]
     Indication: RAYNAUD'S PHENOMENON
     Route: 048
  8. AMLODIPINE BESYLATE [Concomitant]
     Indication: RAYNAUD'S PHENOMENON
     Dosage: 10 MG
     Route: 048
  9. ACARBOSE [Concomitant]
     Indication: HYPOGLYCAEMIA
     Route: 048
  10. LORAZEPAM [Concomitant]
     Indication: ANXIETY
     Route: 048
  11. LORAZEPAM [Concomitant]
     Indication: INSOMNIA
  12. OXYCONTIN IR [Concomitant]
     Indication: PAIN
     Route: 048
  13. QUETIAPINE FUMARATE [Concomitant]
     Indication: ANTIDEPRESSANT THERAPY
     Route: 048
  14. QUETIAPINE FUMARATE [Concomitant]
     Indication: ANXIETY
  15. DULOXETINE HYDROCHLORIDE [Concomitant]
     Indication: DEPRESSION
     Route: 048
  16. BIOTIN [Concomitant]
     Indication: DRUG USE FOR UNKNOWN INDICATION
  17. CALCIUM [Concomitant]
     Indication: DRUG USE FOR UNKNOWN INDICATION
     Route: 048
  18. FISH OIL [Concomitant]
     Indication: DRUG USE FOR UNKNOWN INDICATION
  19. MULTI-VITAMIN [Concomitant]
     Indication: DRUG USE FOR UNKNOWN INDICATION
  20. VITAMIN B COMPLEX CAP [Concomitant]
     Indication: DRUG USE FOR UNKNOWN INDICATION
  21. CONCENTRATED SOY SUPPLEMENT [Concomitant]
     Indication: HORMONE LEVEL ABNORMAL
  22. HYDROCHLOTHIAZINE [Concomitant]
     Indication: SWELLING
     Dosage: 50 MG
     Route: 048
  23. OXYCODONE HYDROCHLORIDE [Concomitant]
     Indication: PAIN

REACTIONS (5)
  - FATIGUE [None]
  - HYPOAESTHESIA [None]
  - JOINT SWELLING [None]
  - MUSCLE TWITCHING [None]
  - PARAESTHESIA [None]
